FAERS Safety Report 17919657 (Version 3)
Quarter: 2020Q4

REPORT INFORMATION
  Report Type: Report from Study
  Country: None (occurrence: CA)
  Receive Date: 20200620
  Receipt Date: 20201117
  Transmission Date: 20210113
  Serious: Yes (Hospitalization, Other)
  Sender: FDA-Public Use
  Company Number: CA-ABBVIE-20K-028-3449233-00

PATIENT
  Sex: Female
  Weight: 60 kg

DRUGS (2)
  1. HUMIRA [Suspect]
     Active Substance: ADALIMUMAB
     Route: 058
     Dates: start: 20200612
  2. HUMIRA [Suspect]
     Active Substance: ADALIMUMAB
     Indication: PSORIATIC ARTHROPATHY
     Route: 058
     Dates: start: 20110522, end: 201910

REACTIONS (14)
  - Musculoskeletal disorder [Not Recovered/Not Resolved]
  - Upper limb fracture [Not Recovered/Not Resolved]
  - Psoriatic arthropathy [Not Recovered/Not Resolved]
  - Spinal fusion surgery [Unknown]
  - Fall [Recovered/Resolved]
  - Back pain [Not Recovered/Not Resolved]
  - Loss of consciousness [Recovered/Resolved]
  - Arthralgia [Not Recovered/Not Resolved]
  - Coma [Recovered/Resolved]
  - Hypovolaemic shock [Unknown]
  - Joint range of motion decreased [Not Recovered/Not Resolved]
  - Pain [Not Recovered/Not Resolved]
  - Colitis ischaemic [Unknown]
  - Pneumonia [Recovered/Resolved]

NARRATIVE: CASE EVENT DATE: 2019
